FAERS Safety Report 5128446-7 (Version None)
Quarter: 2006Q3

REPORT INFORMATION
  Report Type: 
  Country: None (occurrence: None)
  Receive Date: 20060928
  Receipt Date: 20060919
  Transmission Date: 20061208
  Serious: Yes (Hospitalization)
  Sender: FDA-Public Use
  Company Number: THYM-11063

PATIENT
  Age: 32 Year
  Sex: Female
  Weight: 52.6 kg

DRUGS (2)
  1. THYMOGLOBULIN [Suspect]
     Indication: PANCREAS TRANSPLANT
     Dosage: 84 MG QD IV
     Route: 042
     Dates: start: 20060727, end: 20060727
  2. THYMOGLOBULIN [Suspect]
     Indication: PANCREAS TRANSPLANT
     Dosage: 90 MG QD IV
     Route: 042
     Dates: start: 20060728, end: 20060730

REACTIONS (1)
  - SERUM SICKNESS [None]
